FAERS Safety Report 9501980 (Version 1)
Quarter: 2013Q3

REPORT INFORMATION
  Report Type: Spontaneous
  Country: US (occurrence: US)
  Receive Date: 20130905
  Receipt Date: 20130905
  Transmission Date: 20140515
  Serious: No
  Sender: FDA-Public Use
  Company Number: US-009507513-1309USA000429

PATIENT
  Sex: Female

DRUGS (2)
  1. NASONEX [Suspect]
     Indication: SLEEP APNOEA SYNDROME
     Dosage: ONE OR TWO SPRAYS PER NOSTRIL ONCE BEFORE BEDTIME
     Route: 055
  2. NASONEX [Suspect]
     Indication: HYPERSENSITIVITY

REACTIONS (2)
  - Nasal discomfort [Not Recovered/Not Resolved]
  - Toothache [Not Recovered/Not Resolved]
